FAERS Safety Report 7406068-2 (Version None)
Quarter: 2011Q2

REPORT INFORMATION
  Report Type: 
  Country: None (occurrence: None)
  Receive Date: 20110411
  Receipt Date: 20110401
  Transmission Date: 20111010
  Serious: Yes (Hospitalization)
  Sender: FDA-Public Use
  Company Number: B0711122A

PATIENT
  Sex: Female
  Weight: 58 kg

DRUGS (16)
  1. ALKERAN [Suspect]
     Indication: STEM CELL TRANSPLANT
     Dosage: 210MG PER DAY
     Route: 042
     Dates: start: 20101116, end: 20101116
  2. VEPESID [Suspect]
     Indication: STEM CELL TRANSPLANT
     Dosage: 300MG PER DAY
     Route: 042
     Dates: start: 20101112, end: 20101115
  3. MEYLON [Concomitant]
     Dosage: 80ML PER DAY
     Route: 042
     Dates: start: 20101116, end: 20101116
  4. SOLDEM 3A [Concomitant]
     Dosage: 1000ML PER DAY
     Route: 042
     Dates: start: 20101116, end: 20101117
  5. FUROSEMIDE [Concomitant]
     Dosage: 2ML PER DAY
     Route: 042
     Dates: start: 20101116, end: 20101118
  6. BARACLUDE [Concomitant]
     Dosage: .5MG PER DAY
     Route: 048
     Dates: start: 20101116
  7. CYLOCIDE [Suspect]
     Indication: STEM CELL TRANSPLANT
     Dosage: 620MG PER DAY
     Route: 042
     Dates: start: 20101112, end: 20101115
  8. CYMERIN [Concomitant]
     Indication: STEM CELL TRANSPLANT
     Dosage: 380MG PER DAY
     Route: 042
     Dates: start: 20101111, end: 20101112
  9. VICCLOX [Concomitant]
     Dosage: 1000MG PER DAY
     Route: 048
     Dates: start: 20101111, end: 20101117
  10. HACHIAZULE [Concomitant]
     Route: 002
     Dates: start: 20101116, end: 20101119
  11. KYTRIL [Concomitant]
     Dosage: 3MG PER DAY
     Route: 042
     Dates: start: 20101116, end: 20101116
  12. DIFLUCAN [Concomitant]
     Dosage: 200MG PER DAY
     Route: 048
     Dates: start: 20101111, end: 20101117
  13. ITRIZOLE [Concomitant]
     Dosage: 100MG PER DAY
     Route: 048
     Dates: start: 20101115, end: 20101116
  14. RESTAMIN [Concomitant]
     Route: 061
     Dates: start: 20101116, end: 20101116
  15. SOLULACT [Concomitant]
     Dosage: 1000ML PER DAY
     Route: 042
     Dates: start: 20101116, end: 20101117
  16. POLYMYXIN-B-SULFATE [Concomitant]
     Dosage: 3IU6 PER DAY
     Route: 048
     Dates: start: 20101111, end: 20101123

REACTIONS (2)
  - DIARRHOEA [None]
  - MUCOUS MEMBRANE DISORDER [None]
